FAERS Safety Report 14354717 (Version 1)
Quarter: 2018Q1

REPORT INFORMATION
  Report Type: Spontaneous
  Country: FR (occurrence: FR)
  Receive Date: 20180105
  Receipt Date: 20180105
  Transmission Date: 20180509
  Serious: Yes (Other)
  Sender: FDA-Public Use
  Company Number: FR-MERCK KGAA-2039432

PATIENT
  Age: 59 Year
  Sex: Female
  Weight: 57 kg

DRUGS (1)
  1. NOVOTHYROX [Suspect]
     Active Substance: LEVOTHYROXINE SODIUM
     Indication: THYROIDECTOMY
     Route: 048
     Dates: start: 20170511

REACTIONS (16)
  - Sleep disorder [Recovering/Resolving]
  - Night sweats [Recovering/Resolving]
  - Alopecia [Recovering/Resolving]
  - Muscle spasms [Recovered/Resolved]
  - Asthenia [Recovering/Resolving]
  - Balance disorder [Recovering/Resolving]
  - Flatulence [Recovering/Resolving]
  - Headache [Recovered/Resolved]
  - Blood thyroid stimulating hormone normal [Recovered/Resolved]
  - Anxiety [Recovering/Resolving]
  - Diarrhoea [Recovering/Resolving]
  - Depression [Recovering/Resolving]
  - Dyspnoea [Recovering/Resolving]
  - Palpitations [Recovering/Resolving]
  - Hot flush [Recovering/Resolving]
  - Suicidal ideation [Recovering/Resolving]

NARRATIVE: CASE EVENT DATE: 20170615
